FAERS Safety Report 9059557 (Version 1)
Quarter: 2013Q1

REPORT INFORMATION
  Report Type: Spontaneous
  Country: US (occurrence: None)
  Receive Date: 20130205
  Receipt Date: 20130205
  Transmission Date: 20140127
  Serious: No
  Sender: FDA-Public Use
  Company Number: None

PATIENT
  Sex: Male
  Weight: 59.8 kg

DRUGS (1)
  1. PEGASPARGASE [Suspect]
     Dosage: COURSE IV DAY 4 (ON 1/4/13) WAS WHEN PEG WAS LAST GIVEN.

REACTIONS (5)
  - Arthralgia [None]
  - Hypertriglyceridaemia [None]
  - Pseudohyperkalaemia [None]
  - Transaminases increased [None]
  - Hypercholesterolaemia [None]
